FAERS Safety Report 17443934 (Version 1)
Quarter: 2020Q3

REPORT INFORMATION
  Report Type: Spontaneous
  Country: IL (occurrence: IL)
  Receive Date: 20200221
  Receipt Date: 20200221
  Transmission Date: 20201104
  Serious: Yes (Death, Hospitalization)
  Sender: FDA-Public Use
  Company Number: IL-ROCHE-2542222

PATIENT
  Age: 86 Year
  Sex: Female
  Weight: 82 kg

DRUGS (17)
  1. FUSID [FUROSEMIDE] [Concomitant]
     Active Substance: FUROSEMIDE
  2. DIOVAN [Concomitant]
     Active Substance: VALSARTAN
  3. SIMVACOR [Concomitant]
     Active Substance: SIMVASTATIN
  4. OXYCODON [Concomitant]
     Active Substance: OXYCODONE
  5. BENDAMUSTINE [Suspect]
     Active Substance: BENDAMUSTINE
     Indication: PRODUCT USED FOR UNKNOWN INDICATION
     Route: 065
     Dates: start: 20190804
  6. APIXABAN [Concomitant]
     Active Substance: APIXABAN
  7. ZOVIRAX [Concomitant]
     Active Substance: ACYCLOVIR
  8. ELIQUIS [Concomitant]
     Active Substance: APIXABAN
  9. DUROGESIC [Concomitant]
     Active Substance: FENTANYL
  10. MAGNESIUM DIASPORAL [MAGNESIUM] [Concomitant]
  11. NEULASTIM [Suspect]
     Active Substance: PEGFILGRASTIM
     Indication: PRODUCT USED FOR UNKNOWN INDICATION
     Route: 065
     Dates: start: 20190807
  12. AMBIEN [Concomitant]
     Active Substance: ZOLPIDEM TARTRATE
  13. MIRO [MIRTAZAPINE] [Concomitant]
  14. SPASMEX [TROSPIUM CHLORIDE] [Concomitant]
  15. CARDILOC [Concomitant]
     Active Substance: BISOPROLOL FUMARATE
  16. MABTHERA [Suspect]
     Active Substance: RITUXIMAB
     Indication: PRODUCT USED FOR UNKNOWN INDICATION
     Route: 042
     Dates: start: 20190804
  17. POLATUZUMAB VEDOTIN. [Suspect]
     Active Substance: POLATUZUMAB VEDOTIN
     Indication: DIFFUSE LARGE B-CELL LYMPHOMA
     Route: 042
     Dates: start: 20190804

REACTIONS (15)
  - Blood lactate dehydrogenase increased [Unknown]
  - Immunodeficiency [Fatal]
  - Pyrexia [Unknown]
  - Dyspnoea [Unknown]
  - Hypotension [Unknown]
  - Acute myocardial infarction [Unknown]
  - Altered state of consciousness [Unknown]
  - Acute kidney injury [Unknown]
  - Multiple organ dysfunction syndrome [Fatal]
  - Apathy [Unknown]
  - Hyperkalaemia [Unknown]
  - Atrial fibrillation [Unknown]
  - Chronic kidney disease [Fatal]
  - Lactic acidosis [Unknown]
  - Sepsis [Fatal]

NARRATIVE: CASE EVENT DATE: 20190820
